FAERS Safety Report 25041360 (Version 1)
Quarter: 2025Q1

REPORT INFORMATION
  Report Type: Report from Study
  Country: US (occurrence: US)
  Receive Date: 20250305
  Receipt Date: 20250305
  Transmission Date: 20250409
  Serious: Yes (Other)
  Sender: MYLAN
  Company Number: US-MYLANLABS-2025M1018207

PATIENT
  Age: 17 Year
  Sex: Female

DRUGS (1)
  1. AMNESTEEM [Suspect]
     Active Substance: ISOTRETINOIN
     Indication: Product used for unknown indication
     Dosage: 20 MILLIGRAM, BID(TWICE A DAY)
     Dates: start: 20240216, end: 202502

REACTIONS (2)
  - Maternal exposure during pregnancy [Recovered/Resolved]
  - Abortion induced [Recovered/Resolved]

NARRATIVE: CASE EVENT DATE: 20250226
